FAERS Safety Report 22134388 (Version 2)
Quarter: 2023Q2

REPORT INFORMATION
  Report Type: Spontaneous
  Country: GB (occurrence: GB)
  Receive Date: 20230324
  Receipt Date: 20230404
  Transmission Date: 20230721
  Serious: Yes (Other)
  Sender: FDA-Public Use
  Company Number: GB-SA-SAC20220406000125

PATIENT
  Age: 9 Year
  Sex: Female

DRUGS (2)
  1. DUPIXENT [Suspect]
     Active Substance: DUPILUMAB
     Indication: Eczema
     Dosage: 200MG 2/52
     Route: 058
     Dates: start: 20220314, end: 20230306
  2. DUPIXENT [Suspect]
     Active Substance: DUPILUMAB
     Indication: Dermatitis atopic

REACTIONS (10)
  - Nephrotic syndrome [Not Recovered/Not Resolved]
  - Iridocyclitis [Unknown]
  - Eye disorder [Not Recovered/Not Resolved]
  - Therapeutic response decreased [Unknown]
  - Madarosis [Unknown]
  - Ectropion [Unknown]
  - Conjunctival hyperaemia [Unknown]
  - Conjunctival follicles [Unknown]
  - Eczema [Unknown]
  - Conjunctivitis [Unknown]
